FAERS Safety Report 7329456-1 (Version None)
Quarter: 2011Q1

REPORT INFORMATION
  Report Type: 
  Country: None (occurrence: None)
  Receive Date: 20110303
  Receipt Date: 20110217
  Transmission Date: 20110831
  Serious: Yes (Death, Other)
  Sender: FDA-Public Use
  Company Number: KR-CELGENEUS-286-20785-11022192

PATIENT

DRUGS (4)
  1. THALIDOMIDE [Suspect]
     Indication: MULTIPLE MYELOMA
     Dosage: 200 MILLIGRAM
     Route: 048
  2. DOXORUBICIN HCL [Concomitant]
     Indication: MULTIPLE MYELOMA
     Dosage: 9 MILLIGRAM/SQ. METER
     Route: 065
  3. VINCRISTINE [Concomitant]
     Indication: MULTIPLE MYELOMA
     Dosage: .4 MILLIGRAM
     Route: 065
  4. DEXAMETHASONE [Concomitant]
     Indication: MULTIPLE MYELOMA
     Dosage: 20 MILLIGRAM
     Route: 065

REACTIONS (13)
  - DEEP VEIN THROMBOSIS [None]
  - THROMBOCYTOPENIA [None]
  - NAUSEA [None]
  - NEUTROPENIA [None]
  - FEBRILE NEUTROPENIA [None]
  - DECREASED APPETITE [None]
  - PNEUMONIA [None]
  - MUCOSAL INFLAMMATION [None]
  - VOMITING [None]
  - PNEUMONIA ASPIRATION [None]
  - PERIPHERAL SENSORY NEUROPATHY [None]
  - CONSTIPATION [None]
  - NO THERAPEUTIC RESPONSE [None]
